FAERS Safety Report 13703524 (Version 1)
Quarter: 2017Q2

REPORT INFORMATION
  Report Type: Spontaneous
  Country: US (occurrence: US)
  Receive Date: 20170629
  Receipt Date: 20170629
  Transmission Date: 20170830
  Serious: Yes (Disabling)
  Sender: FDA-Public Use
  Company Number: US-APOTEX-2017AP013877

PATIENT
  Age: 66 Year
  Sex: Male

DRUGS (5)
  1. SELEGILINE [Concomitant]
     Active Substance: SELEGILINE
     Indication: PRODUCT USED FOR UNKNOWN INDICATION
     Dosage: 10 MG, QD
     Route: 065
  2. CARBIDOPA AND LEVODOPA [Suspect]
     Active Substance: CARBIDOPA\LEVODOPA
     Indication: PARKINSON^S DISEASE
     Dosage: 25 MG/100 MG, 1 TABLET EVERY 4 TO 5 HOURS (TOTAL OF 4 TABLETS PER DAY)
     Route: 065
  3. CARBIDOPA AND LEVODOPA [Suspect]
     Active Substance: CARBIDOPA\LEVODOPA
     Dosage: 25 MG/100 MG, 1 TABLET EVERY 3.5 TO 4 HOURS (TOTAL OF 5 TABLETS PER DAY)
     Route: 065
  4. PRAMIPEXOLE. [Suspect]
     Active Substance: PRAMIPEXOLE
     Indication: PARKINSON^S DISEASE
     Dosage: 0.5 MG, TID
     Route: 065
  5. CITALOPRAM [Concomitant]
     Active Substance: CITALOPRAM HYDROBROMIDE
     Indication: ANXIETY
     Dosage: 10 MG, QD
     Route: 065

REACTIONS (9)
  - On and off phenomenon [Unknown]
  - Tremor [Unknown]
  - Therapeutic response decreased [Unknown]
  - Anxiety [Unknown]
  - Fine motor skill dysfunction [Unknown]
  - Dystonia [Unknown]
  - Food interaction [Unknown]
  - Chorea [Unknown]
  - Impulse-control disorder [Recovered/Resolved]
